FAERS Safety Report 4957329-8 (Version None)
Quarter: 2006Q1

REPORT INFORMATION
  Report Type: 
  Country: None (occurrence: None)
  Receive Date: 20060323
  Receipt Date: 20050303
  Transmission Date: 20060701
  Serious: Yes (Disabling, Other)
  Sender: FDA-Public Use
  Company Number: USA0507103093

PATIENT
  Age: 57 Year
  Sex: Female
  Weight: 52.8 kg

DRUGS (12)
  1. HUMALOG [Suspect]
     Indication: DIABETES MELLITUS
     Dosage: SEE IMAGE
  2. NOVOLIN 70/30 [Concomitant]
  3. AVANDIA [Concomitant]
  4. RENAGEL [Concomitant]
  5. COLCHICUM JTL LIQ [Concomitant]
  6. METOCLOPRAMIDE [Concomitant]
  7. LABETALOL HYDROCHLORIDE [Concomitant]
  8. LIPITOR [Concomitant]
  9. LOTENSIN [Concomitant]
  10. CLONIDINE HCL [Concomitant]
  11. LEXAPRO [Concomitant]
  12. ZANTAC [Concomitant]

REACTIONS (14)
  - ANAEMIA OF CHRONIC DISEASE [None]
  - ANGINA PECTORIS [None]
  - ARTERIOVENOUS FISTULA [None]
  - CARDIAC STRESS TEST ABNORMAL [None]
  - CONGESTIVE CARDIOMYOPATHY [None]
  - DEPRESSION [None]
  - FATIGUE [None]
  - GOUT [None]
  - HAEMODIALYSIS [None]
  - PULMONARY SARCOIDOSIS [None]
  - RENAL FAILURE CHRONIC [None]
  - VASCULAR STENOSIS [None]
  - VENOUS PRESSURE INCREASED [None]
  - VENTRICULAR HYPERTROPHY [None]
